FAERS Safety Report 12543311 (Version 1)
Quarter: 2016Q3

REPORT INFORMATION
  Report Type: Other
  Country: US (occurrence: US)
  Receive Date: 20160711
  Receipt Date: 20160711
  Transmission Date: 20161109
  Serious: Yes (Hospitalization, Other)
  Sender: FDA-Public Use
  Company Number: US-SHIRE-US201608007

PATIENT
  Age: 32 Year
  Sex: Female

DRUGS (2)
  1. CINRYZE [Suspect]
     Active Substance: HUMAN C1-ESTERASE INHIBITOR
     Indication: HEREDITARY ANGIOEDEMA
     Dosage: 1500 UNITS, OTHER (EVERY 3 DAYS)
     Route: 042
     Dates: start: 20141230
  2. CINRYZE [Suspect]
     Active Substance: HUMAN C1-ESTERASE INHIBITOR
     Indication: PROPHYLAXIS

REACTIONS (10)
  - Drug specific antibody present [Unknown]
  - Lung disorder [Unknown]
  - Product use issue [Recovered/Resolved]
  - Pneumonia [Unknown]
  - Malaise [Unknown]
  - Drug ineffective [Unknown]
  - Respiratory disorder [Unknown]
  - Hereditary angioedema [Unknown]
  - Prescribed overdose [Not Recovered/Not Resolved]
  - Inappropriate schedule of drug administration [Recovered/Resolved]

NARRATIVE: CASE EVENT DATE: 20141230
